FAERS Safety Report 24689072 (Version 2)
Quarter: 2024Q4

REPORT INFORMATION
  Report Type: Spontaneous
  Country: US (occurrence: US)
  Receive Date: 20241203
  Receipt Date: 20241210
  Transmission Date: 20250114
  Serious: Yes (Other)
  Sender: CHEPLAPHARM
  Company Number: US-ROCHE-10000134033

PATIENT
  Age: 76 Year
  Sex: Female

DRUGS (14)
  1. CLONAZEPAM [Suspect]
     Active Substance: CLONAZEPAM
     Indication: Product used for unknown indication
  2. CLONAZEPAM [Suspect]
     Active Substance: CLONAZEPAM
     Indication: Product used for unknown indication
     Dosage: 0.5 MG
  3. ACTEMRA [Suspect]
     Active Substance: TOCILIZUMAB
     Indication: C-reactive protein increased
     Dosage: DIRECT AUTO-INJECTOR, STRENGTH : 162 MG/0.9ML
     Route: 058
  4. ACTEMRA [Suspect]
     Active Substance: TOCILIZUMAB
     Indication: Giant cell arteritis
     Dosage: DIRECT AUTO-INJECTOR, STRENGTH : 162 MG/0.9ML
     Route: 058
  5. TYLENOL [Concomitant]
     Active Substance: ACETAMINOPHEN
     Dosage: 650 MG
  6. ELAVIL [Concomitant]
     Active Substance: AMITRIPTYLINE HYDROCHLORIDE
     Dosage: 10 MG
  7. GABAPENTIN [Concomitant]
     Active Substance: GABAPENTIN
     Dosage: 300 MG
  8. ONDANSETRON [Concomitant]
     Active Substance: ONDANSETRON
     Dosage: 4 MG
  9. SUMATRIPTAN [Concomitant]
     Active Substance: SUMATRIPTAN
  10. AMLODIPINE [Concomitant]
     Active Substance: AMLODIPINE BESYLATE
  11. ASPIRIN [Concomitant]
     Active Substance: ASPIRIN
  12. Fluocinolonacetonid [Concomitant]
  13. PREDNISONE [Concomitant]
     Active Substance: PREDNISONE
  14. SULFAMETHOXAZOLE\TRIMETHOPRIM [Concomitant]
     Active Substance: SULFAMETHOXAZOLE\TRIMETHOPRIM

REACTIONS (13)
  - Altered state of consciousness [Unknown]
  - Glaucoma [Unknown]
  - Diabetes mellitus [Unknown]
  - Arthralgia [Unknown]
  - Iron deficiency [Unknown]
  - Large intestine polyp [Unknown]
  - Headache [Unknown]
  - Insomnia [Unknown]
  - Hyperlipidaemia [Unknown]
  - Postmenopause [Unknown]
  - Neck pain [Unknown]
  - Carpal tunnel syndrome [Unknown]
  - Hypertension [Unknown]
